FAERS Safety Report 17537346 (Version 2)
Quarter: 2020Q1

REPORT INFORMATION
  Report Type: Spontaneous
  Country: DE (occurrence: DE)
  Receive Date: 20200313
  Receipt Date: 20200316
  Transmission Date: 20200409
  Serious: No
  Sender: FDA-Public Use
  Company Number: DE-GW PHARMA-202003DEGW00826

PATIENT

DRUGS (6)
  1. EPIDIOLEX [Suspect]
     Active Substance: CANNABIDIOL
     Indication: LENNOX-GASTAUT SYNDROME
     Dosage: 12.76 MG/KG/DAY, 300 MILLIGRAM, BID
     Route: 048
     Dates: start: 202002
  2. APYDAN [OXCARBAZEPINE] [Concomitant]
     Active Substance: OXCARBAZEPINE
     Indication: PRODUCT USED FOR UNKNOWN INDICATION
     Dosage: 1225 MILLIGRAM, QD (600MG - 0MG - 625MG)
     Route: 065
     Dates: start: 2014
  3. LAMOTRIGIN [Concomitant]
     Active Substance: LAMOTRIGINE
     Dosage: UNK, DOSE INCREASED
     Route: 065
     Dates: start: 202002
  4. BRIVARACETAM [Concomitant]
     Active Substance: BRIVARACETAM
     Indication: PRODUCT USED FOR UNKNOWN INDICATION
     Dosage: 100 MILLIGRAM, BID (100MG - 0MG - 100MG)
     Route: 065
     Dates: start: 2017
  5. VALPROAT [Concomitant]
     Active Substance: VALPROATE SODIUM
     Indication: PRODUCT USED FOR UNKNOWN INDICATION
     Dosage: UNK
     Route: 065
  6. LAMOTRIGIN [Concomitant]
     Active Substance: LAMOTRIGINE
     Indication: PRODUCT USED FOR UNKNOWN INDICATION
     Dosage: 375 MILLIGRAM, QD (200MG - 0MG - 175MG)
     Route: 065
     Dates: start: 2018, end: 202002

REACTIONS (3)
  - Product use in unapproved indication [Not Recovered/Not Resolved]
  - Product substitution issue [Unknown]
  - Seizure [Recovering/Resolving]

NARRATIVE: CASE EVENT DATE: 202002
